FAERS Safety Report 10007912 (Version 1)
Quarter: 2014Q1

REPORT INFORMATION
  Report Type: Spontaneous
  Country: CH (occurrence: CH)
  Receive Date: 20140313
  Receipt Date: 20140313
  Transmission Date: 20141002
  Serious: Yes (Other)
  Sender: FDA-Public Use
  Company Number: CH-BRISTOL-MYERS SQUIBB COMPANY-20410817

PATIENT
  Age: 68 Year
  Sex: Male

DRUGS (2)
  1. KOMBIGLYZE XR [Suspect]
     Dates: start: 201312
  2. LISITRIL [Concomitant]

REACTIONS (1)
  - Pancreatitis [Unknown]
